FAERS Safety Report 18125985 (Version 2)
Quarter: 2020Q3

REPORT INFORMATION
  Report Type: Report from Study
  Country: None (occurrence: US)
  Receive Date: 20200808
  Receipt Date: 20200907
  Transmission Date: 20201103
  Serious: Yes (Hospitalization)
  Sender: FDA-Public Use
  Company Number: US-ABBVIE-20K-163-3513640-00

PATIENT
  Sex: Female
  Weight: 63.56 kg

DRUGS (5)
  1. VENCLEXTA [Suspect]
     Active Substance: VENETOCLAX
     Dosage: 100 MG 1X100MG TAB DAILY BY MOUTH WEEK 3
     Route: 048
     Dates: start: 202008, end: 202008
  2. VENCLEXTA [Suspect]
     Active Substance: VENETOCLAX
     Indication: T-CELL PROLYMPHOCYTIC LEUKAEMIA
     Dosage: TAKE 20MG (2X10MG TABS) BY MOUTH EVERY DAY ON WEEK1
     Route: 048
     Dates: start: 202008, end: 202008
  3. VENCLEXTA [Suspect]
     Active Substance: VENETOCLAX
     Dosage: 50 MG 1X50MG TAB DAILY BY MOUTH WEEK 2.
     Route: 048
     Dates: start: 202008, end: 202008
  4. VENCLEXTA [Suspect]
     Active Substance: VENETOCLAX
     Dosage: TAKE 2 TABLET(S) BY MOUTH EVERY DAY OR AS DIRECTED
     Route: 048
     Dates: start: 202008, end: 20200824
  5. VENCLEXTA [Suspect]
     Active Substance: VENETOCLAX
     Dosage: 200 MG 2X 100MG TABS DAILY BY MOUTH WEEK 4.
     Route: 048
     Dates: start: 202008, end: 202008

REACTIONS (2)
  - Off label use [Recovered/Resolved]
  - Prolymphocytic leukaemia [Not Recovered/Not Resolved]
